FAERS Safety Report 5644861-7 (Version None)
Quarter: 2008Q1

REPORT INFORMATION
  Report Type: 
  Country: None (occurrence: None)
  Receive Date: 20080229
  Receipt Date: 20071018
  Transmission Date: 20080703
  Serious: No
  Sender: FDA-Public Use
  Company Number: A0683338A

PATIENT
  Age: 80 Year
  Sex: Female

DRUGS (4)
  1. VALTREX [Suspect]
     Dosage: 1G THREE TIMES PER DAY
     Route: 048
     Dates: start: 20070913, end: 20070913
  2. NORVASC [Concomitant]
  3. NEXIUM [Concomitant]
  4. METOPROLOL TARTRATE [Concomitant]

REACTIONS (5)
  - CHEST PAIN [None]
  - DIZZINESS [None]
  - DRY MOUTH [None]
  - DYSGEUSIA [None]
  - MALAISE [None]
